FAERS Safety Report 6298785-5 (Version None)
Quarter: 2009Q3

REPORT INFORMATION
  Report Type: 
  Country: None (occurrence: None)
  Receive Date: 20090805
  Receipt Date: 20090805
  Transmission Date: 20100115
  Serious: Yes (Other)
  Sender: FDA-Public Use
  Company Number: None

PATIENT
  Age: 93 Year
  Sex: Female
  Weight: 56.6996 kg

DRUGS (1)
  1. TOPROL-XL [Suspect]
     Indication: CARDIAC DISORDER
     Dosage: 25MG 1 X D PO
     Route: 048
     Dates: start: 20090301, end: 20090601

REACTIONS (6)
  - ANXIETY [None]
  - ASTHENIA [None]
  - HYPERTHYROIDISM [None]
  - INFLUENZA LIKE ILLNESS [None]
  - INSOMNIA [None]
  - NERVOUSNESS [None]
